FAERS Safety Report 7274995-5 (Version None)
Quarter: 2011Q1

REPORT INFORMATION
  Report Type: 
  Country: None (occurrence: None)
  Receive Date: 20110203
  Receipt Date: 20110203
  Transmission Date: 20110831
  Serious: Yes (Hospitalization, Other)
  Sender: FDA-Public Use
  Company Number: None

PATIENT
  Age: 51 Year
  Sex: Male
  Weight: 99.7913 kg

DRUGS (2)
  1. TRIAD GROUP ALCOHOL SWAB PREP PADS [Suspect]
     Indication: STAPHYLOCOCCAL INFECTION
  2. TRIAD GROUP ALCOHOL SWAB PREP PADS [Suspect]
     Indication: INTRAVENOUS CATHETER MANAGEMENT

REACTIONS (3)
  - SKIN INFECTION [None]
  - STAPHYLOCOCCAL INFECTION [None]
  - OSTEOMYELITIS [None]
